FAERS Safety Report 24438439 (Version 2)
Quarter: 2024Q4

REPORT INFORMATION
  Report Type: Spontaneous
  Country: US (occurrence: US)
  Receive Date: 20241015
  Receipt Date: 20241016
  Transmission Date: 20250115
  Serious: No
  Sender: PFIZER
  Company Number: US-PFIZER INC-PV202400132945

PATIENT
  Age: 71 Year
  Sex: Male
  Weight: 90.5 kg

DRUGS (4)
  1. BOSULIF [Suspect]
     Active Substance: BOSUTINIB MONOHYDRATE
     Indication: Chronic myeloid leukaemia
     Dosage: 400 MG, DAILY
     Route: 048
     Dates: start: 202310
  2. BOSULIF [Suspect]
     Active Substance: BOSUTINIB MONOHYDRATE
     Dosage: 400 MG, DAILY (TAKE 1 TABLET (400 MG TOTAL) BY MOUTH DAILY)
     Route: 048
     Dates: start: 20240712
  3. NEURONTIN [Concomitant]
     Active Substance: GABAPENTIN
     Indication: Neuralgia
     Dosage: TAKE 1-2 CAPSULES AT BEDTIME
     Dates: start: 20240827
  4. ALDACTONE [Concomitant]
     Active Substance: SPIRONOLACTONE
     Dosage: 50 MG, DAILY TAKE 2 TABLETS (50 MG TOTAL) BY MOUTH
     Route: 048
     Dates: start: 20240628

REACTIONS (2)
  - Fatigue [Unknown]
  - Diarrhoea [Unknown]
